FAERS Safety Report 8097057-6 (Version None)
Quarter: 2012Q1

REPORT INFORMATION
  Report Type: 
  Country: None (occurrence: None)
  Receive Date: 20120131
  Receipt Date: 20120119
  Transmission Date: 20120608
  Serious: Yes (Other)
  Sender: FDA-Public Use
  Company Number: GB-BRISTOL-MYERS SQUIBB COMPANY-16357154

PATIENT
  Age: 64 Year
  Sex: Female
  Weight: 60 kg

DRUGS (5)
  1. ONGLYZA [Suspect]
     Indication: DIABETES MELLITUS
     Route: 048
     Dates: start: 20110609, end: 20111124
  2. METFORMIN HCL [Concomitant]
     Indication: DIABETES MELLITUS
     Route: 048
     Dates: start: 20030101
  3. AMLODIPINE [Concomitant]
     Route: 048
     Dates: start: 20070101
  4. LEVOTHYROXINE SODIUM [Concomitant]
     Dates: start: 20110901
  5. ROSUVASTATIN [Concomitant]
     Route: 048
     Dates: start: 20060101

REACTIONS (4)
  - FATIGUE [None]
  - NEUTROPENIA [None]
  - WEIGHT DECREASED [None]
  - HAEMOGLOBIN DECREASED [None]
